FAERS Safety Report 9678128 (Version 1)
Quarter: 2013Q4

REPORT INFORMATION
  Report Type: Report from Study
  Country: US (occurrence: US)
  Receive Date: 20131108
  Receipt Date: 20131108
  Transmission Date: 20140711
  Serious: Yes (Hospitalization)
  Sender: FDA-Public Use
  Company Number: US-ABBVIE-13P-163-1165070-00

PATIENT
  Sex: Female
  Weight: 55.39 kg

DRUGS (2)
  1. HUMIRA [Suspect]
     Indication: RHEUMATOID ARTHRITIS
     Dates: start: 2011, end: 201308
  2. SYNTHROID [Concomitant]
     Indication: THYROIDECTOMY

REACTIONS (7)
  - Hypotension [Recovered/Resolved]
  - Sepsis [Recovered/Resolved]
  - Kidney infection [Recovered/Resolved]
  - Heart rate increased [Recovered/Resolved]
  - Fatigue [Not Recovered/Not Resolved]
  - Musculoskeletal stiffness [Not Recovered/Not Resolved]
  - Plicated tongue [Not Recovered/Not Resolved]
